FAERS Safety Report 12850217 (Version 1)
Quarter: 2016Q4

REPORT INFORMATION
  Report Type: Spontaneous
  Country: US (occurrence: US)
  Receive Date: 20161014
  Receipt Date: 20161014
  Transmission Date: 20170207
  Serious: Yes (Hospitalization, Other)
  Sender: FDA-Public Use
  Company Number: US-STANDARD HOMEOPATHIC COMPANY-1058360

PATIENT
  Age: 5 Month
  Sex: Male

DRUGS (2)
  1. BABY TEETHING (HYLAND HOMEOPATHIC) [Suspect]
     Active Substance: HOMEOPATHICS
     Indication: PYREXIA
     Route: 048
     Dates: start: 2015, end: 2015
  2. BABY TEETHING (HYLAND HOMEOPATHIC) [Suspect]
     Active Substance: HOMEOPATHICS
     Indication: TEETHING
     Route: 048
     Dates: start: 2015, end: 2015

REACTIONS (5)
  - Musculoskeletal stiffness [None]
  - Erythema [None]
  - Tremor [Unknown]
  - Pneumonia viral [Unknown]
  - Febrile convulsion [Unknown]
